FAERS Safety Report 23668673 (Version 1)
Quarter: 2024Q1

REPORT INFORMATION
  Report Type: Report from Study
  Country: HN (occurrence: HN)
  Receive Date: 20240325
  Receipt Date: 20240325
  Transmission Date: 20240410
  Serious: Yes (Hospitalization, Other)
  Sender: FDA-Public Use
  Company Number: HN-MYLANLABS-2024M1026887

PATIENT
  Sex: Male
  Weight: 60 kg

DRUGS (3)
  1. LIPITOR [Suspect]
     Active Substance: ATORVASTATIN CALCIUM
     Indication: Blood viscosity abnormal
     Dosage: 40 MILLIGRAM, QD
     Route: 048
     Dates: start: 2018, end: 20221003
  2. LIPITOR [Suspect]
     Active Substance: ATORVASTATIN CALCIUM
     Dosage: 40 MILLIGRAM, QD
     Route: 048
     Dates: start: 20231026
  3. LIPITOR [Suspect]
     Active Substance: ATORVASTATIN CALCIUM
     Indication: Blood viscosity abnormal
     Dosage: 80 MILLIGRAM, QD
     Route: 048
     Dates: start: 20221003, end: 20231026

REACTIONS (4)
  - Cerebrovascular accident [Not Recovered/Not Resolved]
  - Venous occlusion [Not Recovered/Not Resolved]
  - Blood triglycerides increased [Not Recovered/Not Resolved]
  - Off label use [Not Recovered/Not Resolved]

NARRATIVE: CASE EVENT DATE: 20180101
